FAERS Safety Report 9866192 (Version 2)
Quarter: 2014Q1

REPORT INFORMATION
  Report Type: Spontaneous
  Country: US (occurrence: US)
  Receive Date: 20140203
  Receipt Date: 20140203
  Transmission Date: 20141002
  Serious: No
  Sender: FDA-Public Use
  Company Number: US-ALLERGAN-1317972US

PATIENT
  Sex: Female

DRUGS (6)
  1. RESTASIS [Suspect]
     Indication: DRY EYE
     Dosage: 2 GTT, BID
     Route: 047
     Dates: start: 20131112, end: 20140117
  2. RESTASIS [Suspect]
     Indication: PREOPERATIVE CARE
  3. BESIVANCE                          /06324101/ [Concomitant]
     Indication: PREOPERATIVE CARE
     Dosage: UNK
     Route: 047
     Dates: start: 201312
  4. LOTEMAX [Concomitant]
     Indication: PREOPERATIVE CARE
     Dosage: UNK
     Route: 047
     Dates: start: 201312
  5. PROLENSA [Concomitant]
     Indication: PREOPERATIVE CARE
     Dosage: UNK
     Route: 047
     Dates: start: 201312
  6. THYROID MEDICATION [Concomitant]
     Indication: HYPOTHYROIDISM
     Dosage: UNK
     Route: 048

REACTIONS (2)
  - Eye pruritus [Unknown]
  - Eye irritation [Unknown]
